FAERS Safety Report 8404839-7 (Version None)
Quarter: 2012Q2

REPORT INFORMATION
  Report Type: 
  Country: None (occurrence: None)
  Receive Date: 20120601
  Receipt Date: 20120525
  Transmission Date: 20120825
  Serious: Yes (Other)
  Sender: FDA-Public Use
  Company Number: CA-ABBOTT-10P-028-0797219-00

PATIENT
  Age: 35 Year
  Sex: Female

DRUGS (4)
  1. EXTRA STRENGTH TYLENOL [Concomitant]
     Indication: PRODUCT USED FOR UNKNOWN INDICATION
     Dosage: DAILY DOSE:  UNKNOWN
     Route: 065
  2. BETAHISTINE [Concomitant]
     Indication: PRODUCT USED FOR UNKNOWN INDICATION
     Dosage: DAILY DOSE:  UNKNOWN
     Route: 065
  3. MULTI-VITAMINS [Concomitant]
     Indication: PRODUCT USED FOR UNKNOWN INDICATION
     Dosage: DAILY DOSE:  UNKNOWN
     Route: 065
  4. PROMETRIUM [Suspect]
     Indication: PRODUCT USED FOR UNKNOWN INDICATION
     Route: 048
     Dates: start: 20080610, end: 20080618

REACTIONS (9)
  - DYSARTHRIA [None]
  - HYPOTENSION [None]
  - BLOOD GLUCOSE ABNORMAL [None]
  - HYPOTONIA [None]
  - MOVEMENT DISORDER [None]
  - SENSATION OF HEAVINESS [None]
  - DIZZINESS [None]
  - ASTHENIA [None]
  - BRADYPHRENIA [None]
